FAERS Safety Report 20981585 (Version 3)
Quarter: 2022Q3

REPORT INFORMATION
  Report Type: Spontaneous
  Country: FR (occurrence: FR)
  Receive Date: 20220620
  Receipt Date: 20220719
  Transmission Date: 20221027
  Serious: Yes (Hospitalization)
  Sender: FDA-Public Use
  Company Number: FR-Atnahs Limited-ATNAHS20220100447

PATIENT

DRUGS (13)
  1. ROCALTROL [Suspect]
     Active Substance: CALCITRIOL
     Indication: Blood calcium abnormal
     Dosage: 4 MICROGRAM, Q8H, 12 UG/DAY DIVIDED INTO THREE EQUAL DOSES (12 MCG,1 IN 1 D)
     Route: 065
  2. ROCALTROL [Suspect]
     Active Substance: CALCITRIOL
     Indication: Hypoparathyroidism
     Dosage: 3 MICROGRAM, Q8H, 9 UG/DAY DIVIDED INTO THREE EQUAL DOSES (3 MCG,1 IN 1D)
     Route: 065
  3. ROCALTROL [Suspect]
     Active Substance: CALCITRIOL
     Dosage: UNK
     Route: 065
  4. CALCIUM CARBONATE [Suspect]
     Active Substance: CALCIUM CARBONATE
     Indication: Blood calcium abnormal
     Dosage: 5 GRAM, QD (5 GM, 1 IN 1 D)
     Route: 065
  5. CALCIUM CARBONATE [Suspect]
     Active Substance: CALCIUM CARBONATE
     Indication: Hypocalcaemia
  6. CALCIUM GLUCONATE [Concomitant]
     Active Substance: CALCIUM GLUCONATE
     Indication: Hypocalcaemia
     Dosage: UNK, EVERY 10 DAYS
     Route: 042
  7. FORTEO [Concomitant]
     Active Substance: TERIPARATIDE
     Indication: Blood calcium abnormal
     Dosage: UNK, (3 IN 1 D)
     Route: 065
  8. FORTEO [Concomitant]
     Active Substance: TERIPARATIDE
     Indication: Hypocalcaemia
     Dosage: 60 MG  (20 MG,1 IN 8 HR)
     Route: 058
     Dates: start: 2018
  9. FORTEO [Concomitant]
     Active Substance: TERIPARATIDE
     Dosage: EVERY 8 HOURS 1.35 MICROGRAM PER HOUR
     Route: 058
     Dates: start: 2021
  10. LEVOTHYROXINE [Concomitant]
     Active Substance: LEVOTHYROXINE
     Indication: Thyroid disorder
     Dosage: 175 MICROGRAM, QD (175 MCG,1 IN 1 D)
     Route: 065
  11. VITAMIN D3 [Concomitant]
     Active Substance: CHOLECALCIFEROL
     Indication: Product used for unknown indication
     Dosage: 100000 INTERNATIONAL UNIT
     Route: 065
  12. VITAMIN D3 [Concomitant]
     Active Substance: CHOLECALCIFEROL
     Dosage: 100 INTERNATIONAL UNIT
     Route: 065
  13. PARATHYROID HORMONE [Concomitant]
     Active Substance: PARATHYROID HORMONE
     Indication: Hypocalcaemia
     Dosage: (1 IN 1 D)
     Route: 065

REACTIONS (7)
  - Muscle spasms [Recovered/Resolved]
  - Arthralgia [Recovered/Resolved]
  - Asthenia [Recovered/Resolved]
  - Paraesthesia [Recovered/Resolved]
  - Drug ineffective [Unknown]
  - Hypocalciuria [Recovered/Resolved]
  - Hypocalcaemia [Recovered/Resolved]

NARRATIVE: CASE EVENT DATE: 20030101
